FAERS Safety Report 15270788 (Version 1)
Quarter: 2018Q3

REPORT INFORMATION
  Report Type: Spontaneous
  Country: US (occurrence: US)
  Receive Date: 20180813
  Receipt Date: 20180813
  Transmission Date: 20181010
  Serious: No
  Sender: FDA-Public Use
  Company Number: US-SA-2018SA220211

PATIENT
  Age: 78 Year
  Sex: Male

DRUGS (1)
  1. CAPRELSA [Suspect]
     Active Substance: VANDETANIB
     Indication: THYROID DISORDER
     Dosage: 100 MG, BID
     Route: 048
     Dates: start: 20180614

REACTIONS (11)
  - Breath sounds abnormal [Not Recovered/Not Resolved]
  - Retching [Unknown]
  - Sleep disorder [Recovering/Resolving]
  - Asthenia [Unknown]
  - Rash pruritic [Unknown]
  - Headache [Unknown]
  - Diarrhoea [Unknown]
  - Dyspnoea [Not Recovered/Not Resolved]
  - Decreased appetite [Unknown]
  - Fall [Unknown]
  - Balance disorder [Unknown]
